FAERS Safety Report 6086700-9 (Version None)
Quarter: 2009Q2

REPORT INFORMATION
  Report Type: 
  Country: None (occurrence: None)
  Receive Date: 20090211
  Receipt Date: 20090124
  Transmission Date: 20091009
  Serious: Yes (Hospitalization, Other)
  Sender: FDA-Public Use
  Company Number: CHPA2009US02445

PATIENT
  Age: 49 Year
  Sex: Female
  Weight: 52.2 kg

DRUGS (1)
  1. TRANSDERM SCOP [Suspect]
     Indication: VERTIGO
     Dosage: 1.5 MG, ONCE/SINGLE, TRANSDERMAL
     Route: 062

REACTIONS (8)
  - ACCIDENTAL EXPOSURE [None]
  - DYSARTHRIA [None]
  - ERYTHEMA [None]
  - FORMICATION [None]
  - MYDRIASIS [None]
  - NEUROPATHY PERIPHERAL [None]
  - OFF LABEL USE [None]
  - PARAESTHESIA [None]
